FAERS Safety Report 19503242 (Version 1)
Quarter: 2021Q3

REPORT INFORMATION
  Report Type: Spontaneous
  Country: US (occurrence: US)
  Receive Date: 20210707
  Receipt Date: 20210707
  Transmission Date: 20211014
  Serious: No
  Sender: FDA-Public Use
  Company Number: US-ROCHE-2737206

PATIENT
  Age: 34 Year
  Sex: Female
  Weight: 74.91 kg

DRUGS (2)
  1. CELLCEPT [Suspect]
     Active Substance: MYCOPHENOLATE MOFETIL\MYCOPHENOLATE MOFETIL HYDROCHLORIDE
     Dosage: TWO PILLS A DAY, ONGOING: NO
     Route: 048
  2. CELLCEPT [Suspect]
     Active Substance: MYCOPHENOLATE MOFETIL\MYCOPHENOLATE MOFETIL HYDROCHLORIDE
     Indication: NEUROMYELITIS OPTICA SPECTRUM DISORDER
     Dosage: ONGOING: NO
     Route: 048
     Dates: start: 201909

REACTIONS (6)
  - Vomiting [Unknown]
  - Off label use [Unknown]
  - Gastrointestinal pain [Unknown]
  - Fatigue [Unknown]
  - Intentional product use issue [Unknown]
  - Migraine [Unknown]

NARRATIVE: CASE EVENT DATE: 201909
